FAERS Safety Report 5220925-7 (Version None)
Quarter: 2007Q1

REPORT INFORMATION
  Report Type: 
  Country: None (occurrence: None)
  Receive Date: 20070125
  Receipt Date: 20070125
  Transmission Date: 20070707
  Serious: Yes (Hospitalization)
  Sender: FDA-Public Use
  Company Number: None

PATIENT
  Sex: Female
  Weight: 71.2147 kg

DRUGS (21)
  1. HUMALOG [Suspect]
     Indication: DIABETES MELLITUS
     Dosage: PRIOR TO ADMISSION
  2. LANTUS [Suspect]
     Indication: DIABETES MELLITUS
     Dosage: 12 UNITS QAM PRIOR TO ADMISSION
  3. ZOCOR [Concomitant]
  4. PROCRIT [Concomitant]
  5. NORVASC [Concomitant]
  6. DEMADEX [Concomitant]
  7. PREVACID [Concomitant]
  8. CALCIUM [Concomitant]
  9. VIT BIZ [Concomitant]
  10. ASPIRIN [Concomitant]
  11. ZETIA [Concomitant]
  12. ZOLOFT [Concomitant]
  13. PRANDIN [Concomitant]
  14. IRON [Concomitant]
  15. LOPRESSOR [Concomitant]
  16. DIOVAN [Concomitant]
  17. SYNTHROID [Concomitant]
  18. PLAVIX [Concomitant]
  19. COMPAZINE [Concomitant]
  20. TIMOLOL MALEATE [Concomitant]
  21. PRAMASONE [Concomitant]

REACTIONS (4)
  - CONFUSIONAL STATE [None]
  - DISORIENTATION [None]
  - HYPOGLYCAEMIA [None]
  - SKIN LACERATION [None]
